FAERS Safety Report 8007155-0 (Version None)
Quarter: 2011Q4

REPORT INFORMATION
  Report Type: 
  Country: None (occurrence: None)
  Receive Date: 20111222
  Receipt Date: 20111222
  Transmission Date: 20120403
  Serious: Yes (Hospitalization)
  Sender: FDA-Public Use
  Company Number: None

PATIENT
  Age: 62 Year
  Sex: Male
  Weight: 81.2 kg

DRUGS (2)
  1. METRONIDAZOLE [Suspect]
     Indication: PERITONITIS BACTERIAL
     Dosage: 1000 MG ONCE IV
     Route: 042
     Dates: start: 20110330, end: 20110403
  2. METRONIDAZOLE [Suspect]
     Dosage: 500 MG TID PO
     Route: 048
     Dates: start: 20110406, end: 20110410

REACTIONS (2)
  - HYPERKALAEMIA [None]
  - PANCREATITIS [None]
